FAERS Safety Report 10610753 (Version 3)
Quarter: 2015Q1

REPORT INFORMATION
  Report Type: Report from Study
  Country: BE (occurrence: BE)
  Receive Date: 20141126
  Receipt Date: 20150205
  Transmission Date: 20150720
  Serious: Yes (Hospitalization)
  Sender: FDA-Public Use
  Company Number: BE-BAYER-2014-170654

PATIENT
  Age: 79 Year
  Sex: Male
  Weight: 107 kg

DRUGS (11)
  1. CITALOPRAM [Concomitant]
     Active Substance: CITALOPRAM HYDROBROMIDE
     Indication: DEPRESSION
     Dosage: DAILY DOSE 20 MG
     Dates: start: 2000
  2. ZYLORIC [Concomitant]
     Active Substance: ALLOPURINOL
     Indication: HYPERURICAEMIA
     Dosage: DAILY DOSE 150 MG
     Dates: start: 2000
  3. ALPRAZOLAM. [Concomitant]
     Active Substance: ALPRAZOLAM
     Indication: ANXIETY
     Dosage: DAILY DOSE 1 MG
     Dates: start: 2000
  4. ADVANTAN [Concomitant]
     Active Substance: CORTICOSTEROID NOS
     Indication: ECZEMA
     Dosage: UNK
     Dates: start: 20141014
  5. PRAVASTATIN [Concomitant]
     Active Substance: PRAVASTATIN\PRAVASTATIN SODIUM
     Indication: BLOOD CHOLESTEROL ABNORMAL
  6. GLUCOPHAGE [Concomitant]
     Active Substance: METFORMIN HYDROCHLORIDE
     Indication: DIABETES MELLITUS
     Dosage: DAILY DOSE 850 MG
     Dates: start: 2000
  7. REGORAFENIB [Suspect]
     Active Substance: REGORAFENIB
     Indication: COLORECTAL CANCER
     Dosage: 120 MG, QD FOR 3 WEEKS EVERY 4 WEEKS
     Route: 048
     Dates: start: 20140918, end: 20141113
  8. PERINDOPRIL [Concomitant]
     Active Substance: PERINDOPRIL
     Indication: HYPERTENSION
     Dosage: DAILY DOSE 4 MG
     Dates: start: 2000
  9. DULCOLAX [BISACODYL] [Concomitant]
     Indication: CONSTIPATION
     Dosage: DAILY DOSE 10 MG
     Dates: start: 20141113, end: 20141113
  10. ZOLPIDEM [Concomitant]
     Active Substance: ZOLPIDEM\ZOLPIDEM TARTRATE
     Indication: INSOMNIA
     Dosage: DAILY DOSE 10 MG
     Dates: start: 2000
  11. CARVEDILOL. [Concomitant]
     Active Substance: CARVEDILOL
     Indication: HYPERTENSION
     Dosage: DAILY DOSE 25 MG
     Dates: start: 2000

REACTIONS (1)
  - Hepatitis cholestatic [Recovering/Resolving]

NARRATIVE: CASE EVENT DATE: 20141113
